FAERS Safety Report 17961778 (Version 1)
Quarter: 2020Q2

REPORT INFORMATION
  Report Type: Spontaneous
  Country: US (occurrence: US)
  Receive Date: 20200630
  Receipt Date: 20200630
  Transmission Date: 20200714
  Serious: No
  Sender: FDA-Public Use
  Company Number: US-MYLANLABS-2020M1058264

PATIENT
  Sex: Female

DRUGS (1)
  1. LEVOTHYROXINE. [Suspect]
     Active Substance: LEVOTHYROXINE
     Indication: PRODUCT USED FOR UNKNOWN INDICATION
     Dosage: UNK
     Route: 065

REACTIONS (16)
  - Cough [Unknown]
  - Visual impairment [Unknown]
  - Fatigue [Unknown]
  - Nail disorder [Unknown]
  - Menorrhagia [Unknown]
  - Food allergy [Unknown]
  - Disturbance in attention [Unknown]
  - Alopecia [Unknown]
  - Irritable bowel syndrome [Unknown]
  - Affective disorder [Unknown]
  - Depression [Unknown]
  - Tooth disorder [Unknown]
  - Weight increased [Unknown]
  - Blood cholesterol increased [Unknown]
  - Bone disorder [Unknown]
  - Hypoacusis [Unknown]
